FAERS Safety Report 24715093 (Version 1)
Quarter: 2024Q4

REPORT INFORMATION
  Report Type: Spontaneous
  Country: SE (occurrence: SE)
  Receive Date: 20241210
  Receipt Date: 20241210
  Transmission Date: 20250115
  Serious: Yes (Disabling)
  Sender: PHARMACOSMOS A/S
  Company Number: None

PATIENT
  Age: 50 Year
  Sex: Female
  Weight: 117 kg

DRUGS (1)
  1. IRON ISOMALTOSIDE 1000 [Suspect]
     Active Substance: IRON ISOMALTOSIDE 1000
     Indication: Anaemia
     Dates: start: 20240718, end: 20240718

REACTIONS (4)
  - Skin discolouration [Not Recovered/Not Resolved]
  - Extravasation [Unknown]
  - Thrombosis [Not Recovered/Not Resolved]
  - Product administration error [Recovered/Resolved]

NARRATIVE: CASE EVENT DATE: 20240718
